FAERS Safety Report 5576574-4 (Version None)
Quarter: 2007Q4

REPORT INFORMATION
  Report Type: 
  Country: None (occurrence: None)
  Receive Date: 20071228
  Receipt Date: 20071121
  Transmission Date: 20080405
  Serious: No
  Sender: FDA-Public Use
  Company Number: A0687976A

PATIENT
  Age: 8 Year
  Sex: Male

DRUGS (3)
  1. FLOVENT [Suspect]
     Indication: ASTHMA
     Route: 055
     Dates: start: 20061001
  2. SINGULAIR [Concomitant]
  3. CLARITIN [Concomitant]

REACTIONS (4)
  - COUGH [None]
  - INCREASED APPETITE [None]
  - PHARMACEUTICAL PRODUCT COMPLAINT [None]
  - WEIGHT INCREASED [None]
